FAERS Safety Report 4928203-8 (Version None)
Quarter: 2006Q1

REPORT INFORMATION
  Report Type: 
  Country: None (occurrence: None)
  Receive Date: 20060223
  Receipt Date: 20060208
  Transmission Date: 20060701
  Serious: Yes (Hospitalization)
  Sender: FDA-Public Use
  Company Number: 8014946

PATIENT
  Age: 13 Year
  Sex: Female
  Weight: 12.6 kg

DRUGS (4)
  1. LEVETIRACETAM [Suspect]
     Indication: EPILEPSY
     Dosage: 250 MG/2/D PO
     Route: 048
     Dates: start: 20051213
  2. MAGNESIUM VALPROATE [Concomitant]
  3. LAMOTRIGINE [Concomitant]
  4. TOPIRAMATE [Concomitant]

REACTIONS (2)
  - GENERAL PHYSICAL HEALTH DETERIORATION [None]
  - PNEUMONIA [None]
